FAERS Safety Report 23512818 (Version 2)
Quarter: 2024Q1

REPORT INFORMATION
  Report Type: Spontaneous
  Country: US (occurrence: US)
  Receive Date: 20240212
  Receipt Date: 20240305
  Transmission Date: 20240410
  Serious: No
  Sender: FDA-Public Use
  Company Number: US-BAUSCHBL-2024BNL001439

PATIENT
  Age: 78 Year
  Sex: Female

DRUGS (3)
  1. LUMIFY [Suspect]
     Active Substance: BRIMONIDINE TARTRATE
     Indication: Dry eye
     Dosage: AS NEEDED ,1 DROP INTO THE LEFT EYE AND SOMETIMES THE RIGHT EYE
     Route: 047
     Dates: start: 202401, end: 2024
  2. LUMIFY [Suspect]
     Active Substance: BRIMONIDINE TARTRATE
  3. WATER [Suspect]
     Active Substance: WATER
     Indication: Product used for unknown indication
     Route: 047

REACTIONS (4)
  - Eye infection [Unknown]
  - Eye contusion [Unknown]
  - Eye irritation [Unknown]
  - Suspected product contamination [Unknown]

NARRATIVE: CASE EVENT DATE: 20240101
